FAERS Safety Report 5416669-9 (Version None)
Quarter: 2007Q3

REPORT INFORMATION
  Report Type: 
  Country: None (occurrence: None)
  Receive Date: 20070814
  Receipt Date: 20070803
  Transmission Date: 20080115
  Serious: Yes (Hospitalization)
  Sender: FDA-Public Use
  Company Number: B0482341A

PATIENT
  Age: 52 Year
  Sex: Male

DRUGS (7)
  1. PAXIL [Suspect]
     Dosage: ORAL
     Route: 048
  2. PEGINTERFERON ALFA-2A (FORMULATION UNKNOWN) (PEGINTERFERON ALFA-2A) [Suspect]
     Indication: HEPATITIS C
     Dosage: 100 MCG / SUBCUTANEOUS
     Route: 058
     Dates: start: 20060512, end: 20060912
  3. TRIBAVIRIN CAPSULE (RIBAVIRIN) [Suspect]
     Indication: HEPATITIS C
     Dosage: 800 MG / ORAL
     Route: 048
     Dates: start: 20060512, end: 20060912
  4. FLUNITRAZEPAM (FORMULATION UNKNOWN) (FLUNITRAZEPAM) [Suspect]
  5. THORAZINE [Suspect]
  6. PERPHENAZINE [Suspect]
     Dates: end: 20060713
  7. SULPIRIDE (FORMULATION UNKNOWN) (SULPIRIDE) [Suspect]
     Dates: start: 20060831

REACTIONS (2)
  - COGNITIVE DISORDER [None]
  - PARKINSONISM [None]
